FAERS Safety Report 10177319 (Version 1)
Quarter: 2014Q2

REPORT INFORMATION
  Report Type: Spontaneous
  Country: US (occurrence: None)
  Receive Date: 20140416
  Receipt Date: 20140416
  Transmission Date: 20141212
  Serious: Yes (Other)
  Sender: FDA-Public Use
  Company Number: 163-POMAL-14010362

PATIENT
  Age: 73 Year
  Sex: Male

DRUGS (4)
  1. POMALYST (POMALIDOMIDE) (CAPSULES) [Suspect]
     Indication: PLASMA CELL MYELOMA
     Dosage: 2 MG, 21 IN 21 D, PO
     Route: 048
     Dates: start: 20131118, end: 20131122
  2. GLY-MET (UNKNOWN) [Concomitant]
  3. AMLODIPINE (AMLODIPINE) (UNKNOWN) [Concomitant]
  4. GEMFIBROZIL (GEMFIBROZIL) (UNKNOWN) [Concomitant]

REACTIONS (2)
  - Swelling face [None]
  - Rash pruritic [None]
